FAERS Safety Report 6229016-X (Version None)
Quarter: 2009Q2

REPORT INFORMATION
  Report Type: 
  Country: None (occurrence: None)
  Receive Date: 20090611
  Receipt Date: 20090611
  Transmission Date: 20091009
  Serious: Yes (Other)
  Sender: FDA-Public Use
  Company Number: None

PATIENT
  Sex: Female

DRUGS (1)
  1. VALPROIC ACID [Suspect]
     Indication: EPILEPSY
     Dosage: 250MG 1TAB QAM/ 2 TABS QHS P.O.
     Route: 048
     Dates: start: 20090501

REACTIONS (2)
  - DIZZINESS [None]
  - NAUSEA [None]
